FAERS Safety Report 24591337 (Version 1)
Quarter: 2024Q4

REPORT INFORMATION
  Report Type: Spontaneous
  Country: US (occurrence: US)
  Receive Date: 20241108
  Receipt Date: 20241108
  Transmission Date: 20250115
  Serious: Yes (Other)
  Sender: SANOFI AVENTIS
  Company Number: US-SA-2024SA321628

PATIENT
  Age: 59 Year
  Sex: Female

DRUGS (3)
  1. OXALIPLATIN [Suspect]
     Active Substance: OXALIPLATIN
     Indication: Colorectal adenoma
     Dosage: 100 MG/M2, QOW
  2. FLUOROURACIL [Suspect]
     Active Substance: FLUOROURACIL
     Indication: Colorectal adenoma
     Dosage: UNK UNK, QCY
  3. LEUCOVORIN [Suspect]
     Active Substance: LEUCOVORIN\LEUCOVORIN CALCIUM
     Indication: Colorectal adenoma
     Dosage: UNK UNK, QCY

REACTIONS (8)
  - Drug-induced liver injury [Unknown]
  - Portal hypertension [Unknown]
  - Oesophageal varices haemorrhage [Unknown]
  - Venous recanalisation [Unknown]
  - Varicose veins of abdominal wall [Unknown]
  - Thrombocytopenia [Unknown]
  - Congestive hepatopathy [Unknown]
  - Splenomegaly [Unknown]
